FAERS Safety Report 17203940 (Version 1)
Quarter: 2019Q4

REPORT INFORMATION
  Report Type: Spontaneous
  Country: JP (occurrence: JP)
  Receive Date: 20191226
  Receipt Date: 20191226
  Transmission Date: 20200122
  Serious: Yes (Disabling, Other)
  Sender: FDA-Public Use
  Company Number: JP-SAKK-2019SA324277AA

PATIENT
  Age: 62 Year
  Sex: Male

DRUGS (2)
  1. LANTUS SOLOSTAR [Suspect]
     Active Substance: INSULIN GLARGINE
     Indication: TYPE 1 DIABETES MELLITUS
     Route: 058
  2. NOVORAPID [Suspect]
     Active Substance: INSULIN ASPART
     Indication: TYPE 1 DIABETES MELLITUS
     Dosage: 15-15-15 U
     Route: 065

REACTIONS (10)
  - Mental impairment [Recovering/Resolving]
  - Amnesia [Recovering/Resolving]
  - Dysgraphia [Recovering/Resolving]
  - Hypoglycaemic encephalopathy [Recovering/Resolving]
  - Apraxia [Recovering/Resolving]
  - Blood creatine phosphokinase increased [Recovering/Resolving]
  - Pneumonia aspiration [Unknown]
  - Hypoglycaemic coma [Recovering/Resolving]
  - Hypoglycaemia [Recovering/Resolving]
  - Coma scale abnormal [Recovering/Resolving]

NARRATIVE: CASE EVENT DATE: 20170925
